FAERS Safety Report 5292651-X (Version None)
Quarter: 2007Q2

REPORT INFORMATION
  Report Type: 
  Country: None (occurrence: None)
  Receive Date: 20070404
  Receipt Date: 20070314
  Transmission Date: 20071010
  Serious: Yes (Hospitalization, Other)
  Sender: FDA-Public Use
  Company Number: 07032065

PATIENT
  Age: 31 Year
  Sex: Male

DRUGS (6)
  1. AMIODARONE HCL [Suspect]
     Indication: ATRIAL FIBRILLATION
     Dosage: 600MG, QD, ORAL
     Route: 048
  2. DIGOXIN [Suspect]
     Indication: CARDIOMYOPATHY
     Dosage: 0.125MG, QD, ORAL
     Route: 048
  3. FUROSEMIDE (FRUSEMIDE) [Concomitant]
  4. BENAZEPRIL (BENAZEPRIL) [Concomitant]
  5. ASPIRIN [Concomitant]
  6. FLOVENT [Concomitant]

REACTIONS (2)
  - CARDIOACTIVE DRUG LEVEL INCREASED [None]
  - THERAPEUTIC AGENT TOXICITY [None]
